FAERS Safety Report 6736981-0 (Version None)
Quarter: 2010Q2

REPORT INFORMATION
  Report Type: 
  Country: None (occurrence: None)
  Receive Date: 20100523
  Receipt Date: 20100401
  Transmission Date: 20101027
  Serious: No
  Sender: FDA-Public Use
  Company Number: US-ALLERGAN-1004349US

PATIENT
  Age: 89 Year
  Sex: Female

DRUGS (2)
  1. COMBIGAN [Suspect]
     Indication: GLAUCOMA
     Dosage: 1 GTT, IN RIGHT EYE
  2. XALATAN [Concomitant]
     Indication: GLAUCOMA

REACTIONS (1)
  - SWELLING FACE [None]
